FAERS Safety Report 6191752-1 (Version None)
Quarter: 2009Q2

REPORT INFORMATION
  Report Type: 
  Country: None (occurrence: None)
  Receive Date: 20090515
  Receipt Date: 20090505
  Transmission Date: 20091009
  Serious: Yes (Other)
  Sender: FDA-Public Use
  Company Number: ES-PFIZER INC-2009202151

PATIENT
  Age: 61 Year

DRUGS (1)
  1. TRANKIMAZIN RETARD [Suspect]
     Indication: ANXIETY
     Dosage: 3 MG, 1X/DAY
     Route: 048
     Dates: start: 20080101, end: 20090201

REACTIONS (2)
  - HAEMOLYTIC ANAEMIA [None]
  - PLATELET DISORDER [None]
